FAERS Safety Report 5836253-2 (Version None)
Quarter: 2008Q3

REPORT INFORMATION
  Report Type: 
  Country: None (occurrence: None)
  Receive Date: 20080730
  Receipt Date: 20080527
  Transmission Date: 20090109
  Serious: Yes (Other)
  Sender: FDA-Public Use
  Company Number: US-JNJFOC-20080505971

PATIENT
  Age: 42 Year
  Sex: Female
  Weight: 77.1 kg

DRUGS (2)
  1. IMODIUM (LOPERAMIDE/SIMETHICONE) UNSPECIFIED [Suspect]
     Indication: DRUG USE FOR UNKNOWN INDICATION
     Dates: start: 20080507
  2. ALDARA [Suspect]
     Indication: BASAL CELL CARCINOMA
     Dosage: APPLICATION, 5 TIMES WEEKLY
     Dates: start: 20080505

REACTIONS (1)
  - ANAPHYLACTIC REACTION [None]
